FAERS Safety Report 13112179 (Version 1)
Quarter: 2017Q1

REPORT INFORMATION
  Report Type: Spontaneous
  Country: CA (occurrence: CA)
  Receive Date: 20170113
  Receipt Date: 20170113
  Transmission Date: 20170428
  Serious: Yes (Other)
  Sender: FDA-Public Use
  Company Number: CA-ROCHE-1876543

PATIENT
  Sex: Male

DRUGS (21)
  1. METHOTREXATE SODIUM. [Suspect]
     Active Substance: METHOTREXATE SODIUM
     Indication: RHEUMATOID ARTHRITIS
     Route: 058
     Dates: start: 1996
  2. METHOTREXATE SODIUM. [Suspect]
     Active Substance: METHOTREXATE SODIUM
     Route: 048
     Dates: start: 20130725, end: 2014
  3. ENBREL [Suspect]
     Active Substance: ETANERCEPT
     Indication: RHEUMATOID ARTHRITIS
     Route: 058
     Dates: start: 20081110, end: 20110408
  4. METHOTREXATE SODIUM. [Suspect]
     Active Substance: METHOTREXATE SODIUM
     Route: 048
     Dates: start: 20080328
  5. METHOTREXATE SODIUM. [Suspect]
     Active Substance: METHOTREXATE SODIUM
     Route: 065
     Dates: start: 20090209
  6. INFLIXIMAB [Concomitant]
     Active Substance: INFLIXIMAB
     Route: 065
     Dates: start: 20070830
  7. ENBREL [Suspect]
     Active Substance: ETANERCEPT
     Route: 058
     Dates: start: 20101103, end: 20110804
  8. METHOTREXATE SODIUM. [Suspect]
     Active Substance: METHOTREXATE SODIUM
     Route: 048
     Dates: start: 20110429
  9. REMICADE [Suspect]
     Active Substance: INFLIXIMAB
     Indication: RHEUMATOID ARTHRITIS
     Route: 058
  10. INFLIXIMAB [Concomitant]
     Active Substance: INFLIXIMAB
     Route: 065
     Dates: start: 20030610
  11. CORTISONE [Concomitant]
     Active Substance: CORTISONE\HYDROCORTISONE
  12. ACTEMRA [Suspect]
     Active Substance: TOCILIZUMAB
     Indication: RHEUMATOID ARTHRITIS
     Route: 042
     Dates: start: 20110610
  13. HUMIRA [Suspect]
     Active Substance: ADALIMUMAB
     Indication: RHEUMATOID ARTHRITIS
     Route: 058
  14. ENBREL [Suspect]
     Active Substance: ETANERCEPT
     Route: 058
     Dates: start: 20090604
  15. METHOTREXATE SODIUM. [Suspect]
     Active Substance: METHOTREXATE SODIUM
     Route: 048
     Dates: start: 20081107
  16. METHOTREXATE SODIUM. [Suspect]
     Active Substance: METHOTREXATE SODIUM
     Route: 048
     Dates: start: 20100311
  17. METHOTREXATE SODIUM. [Suspect]
     Active Substance: METHOTREXATE SODIUM
     Route: 048
     Dates: start: 20110930
  18. ARAVA [Suspect]
     Active Substance: LEFLUNOMIDE
     Indication: RHEUMATOID ARTHRITIS
     Route: 042
     Dates: start: 20111006
  19. METHOTREXATE SODIUM. [Suspect]
     Active Substance: METHOTREXATE SODIUM
     Route: 058
     Dates: start: 20081011, end: 20110804
  20. METHOTREXATE SODIUM. [Suspect]
     Active Substance: METHOTREXATE SODIUM
     Route: 065
     Dates: start: 20090406
  21. METHOTREXATE SODIUM. [Suspect]
     Active Substance: METHOTREXATE SODIUM
     Route: 048
     Dates: start: 20120803

REACTIONS (19)
  - Diabetes mellitus [Not Recovered/Not Resolved]
  - Red blood cell sedimentation rate abnormal [Unknown]
  - Hepatic steatosis [Unknown]
  - Bone erosion [Unknown]
  - Drug ineffective [Unknown]
  - Musculoskeletal stiffness [Unknown]
  - Arthropathy [Unknown]
  - Joint swelling [Unknown]
  - Arthralgia [Unknown]
  - Pain [Unknown]
  - Alanine aminotransferase abnormal [Unknown]
  - Anti-cyclic citrullinated peptide antibody positive [Unknown]
  - Upper respiratory tract infection [Unknown]
  - C-reactive protein abnormal [Unknown]
  - Joint ankylosis [Unknown]
  - Liver disorder [Unknown]
  - Osteolysis [Unknown]
  - Bone cyst [Unknown]
  - Hypertension [Unknown]
